FAERS Safety Report 4464565-6 (Version None)
Quarter: 2004Q3

REPORT INFORMATION
  Report Type: 
  Country: None (occurrence: None)
  Receive Date: 20040929
  Receipt Date: 20040914
  Transmission Date: 20050211
  Serious: Yes (Death, Hospitalization)
  Sender: FDA-Public Use
  Company Number: 105089ISR

PATIENT
  Age: 70 Year
  Sex: Female

DRUGS (2)
  1. ETOPOSIDE [Suspect]
     Dosage: 190 MILLIGRAM
     Dates: start: 20040510, end: 20040512
  2. CISPLATIN [Suspect]
     Dosage: 190 MILLIGRAM
     Dates: start: 20040510, end: 20040512

REACTIONS (11)
  - BACK PAIN [None]
  - BLOOD POTASSIUM INCREASED [None]
  - BLOOD SODIUM DECREASED [None]
  - DIARRHOEA [None]
  - DRUG TOXICITY [None]
  - GENERAL PHYSICAL CONDITION ABNORMAL [None]
  - KIDNEY SMALL [None]
  - RENAL FAILURE ACUTE [None]
  - RENAL HYPERTROPHY [None]
  - SEPTIC SHOCK [None]
  - VOMITING [None]
